FAERS Safety Report 10508967 (Version 1)
Quarter: 2014Q3

REPORT INFORMATION
  Report Type: Spontaneous
  Country: US (occurrence: None)
  Receive Date: 20140915
  Receipt Date: 20140915
  Transmission Date: 20150326
  Serious: Yes (Other)
  Sender: FDA-Public Use
  Company Number: 2014-US-002166

PATIENT
  Age: 35 Year
  Sex: Female
  Weight: 66.2 kg

DRUGS (13)
  1. ORTHO-CEPT [Concomitant]
     Active Substance: DESOGESTREL\ETHINYL ESTRADIOL
  2. ACCOLATE [Concomitant]
     Active Substance: ZAFIRLUKAST
  3. KETAMINE [Concomitant]
     Active Substance: KETAMINE
  4. AMBIEN CR [Concomitant]
     Active Substance: ZOLPIDEM TARTRATE
  5. TRAZODONE [Concomitant]
     Active Substance: TRAZODONE HYDROCHLORIDE
  6. FLEXERIL [Concomitant]
     Active Substance: CYCLOBENZAPRINE HYDROCHLORIDE
  7. ATARAX [Concomitant]
     Active Substance: HYDROXYZINE\HYDROXYZINE HYDROCHLORIDE
  8. ARMOUR THYROID [Concomitant]
     Active Substance: THYROID, PORCINE\THYROID, UNSPECIFIED
  9. SONATA [Concomitant]
     Active Substance: ZALEPLON
  10. XYREM [Suspect]
     Active Substance: SODIUM OXYBATE
     Indication: FIBROMYALGIA
     Route: 048
     Dates: start: 201202, end: 2012
  11. CLONAZEPAM. [Concomitant]
     Active Substance: CLONAZEPAM
  12. URISPAS [Concomitant]
     Active Substance: FLAVOXATE HYDROCHLORIDE
  13. ZANAFLEX [Concomitant]
     Active Substance: TIZANIDINE HYDROCHLORIDE

REACTIONS (2)
  - Weight decreased [None]
  - Off label use [None]
